FAERS Safety Report 14131353 (Version 2)
Quarter: 2018Q1

REPORT INFORMATION
  Report Type: Report from Study
  Country: US (occurrence: US)
  Receive Date: 20171026
  Receipt Date: 20180123
  Transmission Date: 20180508
  Serious: No
  Sender: FDA-Public Use
  Company Number: US-AMGEN-USASL2017137264

PATIENT
  Age: 73 Year
  Sex: Female

DRUGS (2)
  1. REPATHA [Suspect]
     Active Substance: EVOLOCUMAB
     Indication: BLOOD CHOLESTEROL INCREASED
     Dosage: 140 MG, Q2WK
     Route: 065
  2. MELOXICAM. [Concomitant]
     Active Substance: MELOXICAM
     Indication: ARTHRITIS
     Dosage: UNK

REACTIONS (5)
  - Arthralgia [Unknown]
  - Urinary tract infection [Not Recovered/Not Resolved]
  - Pain [Unknown]
  - Abdominal pain upper [Unknown]
  - Fatigue [Unknown]

NARRATIVE: CASE EVENT DATE: 201711
